FAERS Safety Report 20908199 (Version 1)
Quarter: 2022Q2

REPORT INFORMATION
  Report Type: Spontaneous
  Country: US (occurrence: US)
  Receive Date: 20220602
  Receipt Date: 20220602
  Transmission Date: 20220721
  Serious: No
  Sender: FDA-Public Use
  Company Number: US-BRISTOL-MYERS SQUIBB COMPANY-2022-034708

PATIENT
  Age: 8 Decade
  Sex: Female
  Weight: 50.8 kg

DRUGS (1)
  1. ELIQUIS [Suspect]
     Active Substance: APIXABAN
     Indication: Supraventricular tachycardia
     Route: 048
     Dates: start: 202202

REACTIONS (5)
  - Ocular hyperaemia [Unknown]
  - Erythema [Unknown]
  - Rash macular [Unknown]
  - Rash [Unknown]
  - Intentional product use issue [Unknown]

NARRATIVE: CASE EVENT DATE: 20220101
